FAERS Safety Report 5806448-2 (Version None)
Quarter: 2008Q3

REPORT INFORMATION
  Report Type: 
  Country: None (occurrence: None)
  Receive Date: 20080710
  Receipt Date: 20080701
  Transmission Date: 20090109
  Serious: Yes (Hospitalization, Other)
  Sender: FDA-Public Use
  Company Number: BR-ABBOTT-08P-020-0461069-00

PATIENT
  Sex: Female
  Weight: 86 kg

DRUGS (7)
  1. HUMIRA [Suspect]
     Indication: RHEUMATOID ARTHRITIS
     Route: 058
     Dates: start: 20050601, end: 20080505
  2. HUMIRA [Suspect]
     Dates: start: 20080630
  3. METHOTREXATE [Concomitant]
     Indication: RHEUMATOID ARTHRITIS
     Route: 050
  4. FOLIC ACID [Concomitant]
     Indication: RHEUMATOID ARTHRITIS
     Route: 048
  5. UNKNOWN MEDICATION [Concomitant]
     Indication: BLOOD TRIGLYCERIDES INCREASED
     Dosage: 1 TAB PER DAY (AT DINNER)
     Route: 048
     Dates: start: 20071101
  6. ATENOLOL W/HYDROCHLOROTHIAZIDE [Concomitant]
     Indication: HYPERTENSION
     Dosage: 50 MG AND 12.5 MG 1 TAB PER DAY
     Route: 048
     Dates: start: 20050101
  7. CELECOXIB [Concomitant]
     Indication: PAIN
     Route: 048

REACTIONS (5)
  - ARTHRALGIA [None]
  - BONE DISORDER [None]
  - BONE EROSION [None]
  - NERVE COMPRESSION [None]
  - VARICOSE VEIN [None]
